FAERS Safety Report 7818706-0 (Version None)
Quarter: 2011Q4

REPORT INFORMATION
  Report Type: 
  Country: None (occurrence: None)
  Receive Date: 20111018
  Receipt Date: 20111005
  Transmission Date: 20120403
  Serious: No
  Sender: FDA-Public Use
  Company Number: US-BIOGENIDEC-2010BI028723

PATIENT
  Sex: Female

DRUGS (2)
  1. BIRTH CONTROL [Concomitant]
  2. TYSABRI [Suspect]
     Indication: MULTIPLE SCLEROSIS
     Route: 042
     Dates: start: 20100812, end: 20110411

REACTIONS (12)
  - MEMORY IMPAIRMENT [None]
  - PANIC ATTACK [None]
  - HEADACHE [None]
  - BIPOLAR DISORDER [None]
  - URINARY TRACT INFECTION [None]
  - STRESS [None]
  - CONFUSIONAL STATE [None]
  - VISUAL IMPAIRMENT [None]
  - HYPOAESTHESIA [None]
  - ANXIETY [None]
  - PAIN [None]
  - MIGRAINE [None]
